FAERS Safety Report 8265179-2 (Version None)
Quarter: 2012Q2

REPORT INFORMATION
  Report Type: 
  Country: None (occurrence: None)
  Receive Date: 20120406
  Receipt Date: 20120324
  Transmission Date: 20120825
  Serious: Yes (Hospitalization)
  Sender: FDA-Public Use
  Company Number: US-ROCHE-1052754

PATIENT
  Age: 76 Year
  Sex: Female
  Weight: 89.4 kg

DRUGS (4)
  1. CYCLOPHOSPHAMIDE [Suspect]
     Indication: BREAST CANCER
     Dosage: LAST DOSE PRIOR TO THE EVENT: 22/FEB/2012
     Route: 042
     Dates: start: 20120111
  2. HERCEPTIN [Suspect]
     Indication: BREAST CANCER
     Dosage: LAST DOSE PRIOR TO EVENT: 22/FEB/2012
     Route: 042
     Dates: start: 20120111
  3. DOCETAXEL [Suspect]
     Indication: BREAST CANCER
     Dosage: LAST DOSE PRIOR TO THE EVENT: 22/FEB/2012
     Route: 042
     Dates: start: 20120111
  4. NEUPOGEN [Concomitant]

REACTIONS (1)
  - SEPSIS [None]
